FAERS Safety Report 7500439-1 (Version None)
Quarter: 2011Q2

REPORT INFORMATION
  Report Type: 
  Country: None (occurrence: None)
  Receive Date: 20110524
  Receipt Date: 20110419
  Transmission Date: 20111010
  Serious: No
  Sender: FDA-Public Use
  Company Number: US-BRISTOL-MYERS SQUIBB COMPANY-15619356

PATIENT
  Sex: Male

DRUGS (3)
  1. GLYBURIDE [Concomitant]
  2. ONGLYZA [Suspect]
     Indication: BLOOD GLUCOSE
     Dates: start: 20100201
  3. METFORMIN HCL [Concomitant]

REACTIONS (2)
  - DRUG INEFFECTIVE [None]
  - OVERDOSE [None]
